FAERS Safety Report 24271790 (Version 2)
Quarter: 2025Q1

REPORT INFORMATION
  Report Type: Spontaneous
  Country: NZ (occurrence: NZ)
  Receive Date: 20240902
  Receipt Date: 20250305
  Transmission Date: 20250408
  Serious: Yes (Death, Hospitalization)
  Sender: ROCHE
  Company Number: NZ-ROCHE-10000069021

PATIENT
  Age: 63 Year
  Sex: Male

DRUGS (1)
  1. GAZYVA [Suspect]
     Active Substance: OBINUTUZUMAB
     Indication: Diffuse large B-cell lymphoma
     Route: 065
     Dates: start: 20240709

REACTIONS (2)
  - Death [Fatal]
  - COVID-19 [Unknown]
